FAERS Safety Report 11971850 (Version 3)
Quarter: 2016Q4

REPORT INFORMATION
  Report Type: Spontaneous
  Country: ES (occurrence: ES)
  Receive Date: 20160128
  Receipt Date: 20161221
  Transmission Date: 20170206
  Serious: Yes (Hospitalization, Other)
  Sender: FDA-Public Use
  Company Number: ES-JNJFOC-20160115376

PATIENT

DRUGS (1)
  1. STELARA [Suspect]
     Active Substance: USTEKINUMAB
     Indication: PSORIASIS
     Route: 058

REACTIONS (79)
  - Intermittent claudication [Unknown]
  - Cataract [Unknown]
  - Asthmatic crisis [Unknown]
  - Pneumonia [Unknown]
  - Pneumonia bacterial [Unknown]
  - Myocardial ischaemia [Unknown]
  - Lung neoplasm malignant [Unknown]
  - Gallbladder obstruction [Unknown]
  - Alcoholic pancreatitis [Unknown]
  - Transmyocardial revascularisation [Unknown]
  - Iron deficiency anaemia [Unknown]
  - Lung adenocarcinoma [Unknown]
  - Renal colic [Unknown]
  - Renal failure [Unknown]
  - Condition aggravated [Unknown]
  - Intestinal adenocarcinoma [Unknown]
  - Peripheral ischaemia [Unknown]
  - Inguinal hernia repair [Unknown]
  - Knee arthroplasty [Unknown]
  - Cervical conisation [Unknown]
  - Asthenia [Unknown]
  - Drug ineffective [Unknown]
  - Bipolar disorder [Unknown]
  - Ovarian germ cell embryonal carcinoma stage II [Unknown]
  - Renal cell carcinoma stage I [Unknown]
  - Transient ischaemic attack [Unknown]
  - Tuberculosis of peripheral lymph nodes [Unknown]
  - Hernia [Unknown]
  - Suicide attempt [Unknown]
  - Endarterectomy [Unknown]
  - Squamous cell carcinoma [Unknown]
  - Neoplasm malignant [Unknown]
  - Pyoderma gangrenosum [Unknown]
  - Pelvic inflammatory disease [Unknown]
  - Tracheobronchitis [Unknown]
  - Cerebellar infarction [Unknown]
  - Blood disorder [Unknown]
  - Hepatic encephalopathy [Unknown]
  - Escherichia sepsis [Unknown]
  - Intracranial tumour haemorrhage [Unknown]
  - Intervertebral disc disorder [Unknown]
  - Migraine [Unknown]
  - Colon neoplasm [Unknown]
  - Angina pectoris [Unknown]
  - Angina unstable [Unknown]
  - Psoriatic arthropathy [Unknown]
  - Ependymoma [Unknown]
  - Bladder neoplasm [Unknown]
  - Exposure during pregnancy [Unknown]
  - Arthritis [Unknown]
  - Gastric operation [Unknown]
  - Gastric haemorrhage [Unknown]
  - Migraine with aura [Unknown]
  - Peripheral artery angioplasty [Unknown]
  - Nasal septal operation [Unknown]
  - Reversible ischaemic neurological deficit [Unknown]
  - Herpes zoster [Unknown]
  - Breast neoplasm [Unknown]
  - Ischaemic stroke [Unknown]
  - Epiglottic carcinoma [Unknown]
  - Anaemia [Unknown]
  - Psoriasis [Unknown]
  - Pancreatitis acute [Unknown]
  - Hepatic cirrhosis [Unknown]
  - Ankle fracture [Unknown]
  - Colitis ischaemic [Unknown]
  - Viral pericarditis [Unknown]
  - Loss of consciousness [Unknown]
  - Ulna fracture [Unknown]
  - Syncope [Unknown]
  - Appendicitis [Unknown]
  - Arrhythmia supraventricular [Unknown]
  - Colon cancer stage III [Unknown]
  - Diarrhoea haemorrhagic [Unknown]
  - Peripheral vascular disorder [Unknown]
  - Biopsy liver [Unknown]
  - Epicondylitis [Unknown]
  - Cerebral artery embolism [Unknown]
  - Thyroid neoplasm [Unknown]
